FAERS Safety Report 8310396-6 (Version None)
Quarter: 2012Q2

REPORT INFORMATION
  Report Type: 
  Country: None (occurrence: None)
  Receive Date: 20120425
  Receipt Date: 20120411
  Transmission Date: 20120825
  Serious: Yes (Disabling, Other)
  Sender: FDA-Public Use
  Company Number: BR-BAYER-2012-039654

PATIENT
  Age: 51 Year
  Sex: Female

DRUGS (3)
  1. INTERFERON BETA-1B [Suspect]
     Indication: MULTIPLE SCLEROSIS
     Dosage: 1 ML, QOD
     Route: 058
     Dates: start: 20100301
  2. ENALAPRIL MALEATE [Concomitant]
     Indication: HYPERTENSION
     Dosage: 1 DF, BID
     Route: 048
     Dates: start: 20090101
  3. INDAPEN [INDAPAMIDE] [Concomitant]
     Indication: HYPERTENSION
     Dosage: 1 DF, BID
     Route: 048
     Dates: start: 20090101

REACTIONS (9)
  - BACK PAIN [None]
  - OPTIC NEURITIS [None]
  - EXOSTOSIS [None]
  - FATIGUE [None]
  - MALAISE [None]
  - HEART RATE INCREASED [None]
  - DIZZINESS [None]
  - ASTHENIA [None]
  - PARAPARESIS [None]
